FAERS Safety Report 10168861 (Version 1)
Quarter: 2014Q2

REPORT INFORMATION
  Report Type: Spontaneous
  Country: US (occurrence: US)
  Receive Date: 20140513
  Receipt Date: 20140513
  Transmission Date: 20141212
  Serious: Yes (Hospitalization, Other)
  Sender: FDA-Public Use
  Company Number: US-AMGEN-USASP2014034259

PATIENT
  Age: 73 Year
  Sex: Female

DRUGS (2)
  1. ENBREL [Suspect]
     Indication: PSORIATIC ARTHROPATHY
     Dosage: UNK
     Route: 065
     Dates: start: 20060915
  2. ENBREL [Suspect]
     Indication: PSORIASIS

REACTIONS (9)
  - Hip arthroplasty [Unknown]
  - Spinal fusion surgery [Unknown]
  - Shoulder arthroplasty [Unknown]
  - Spinal fracture [Unknown]
  - Knee arthroplasty [Unknown]
  - Hip surgery [Unknown]
  - Gait disturbance [Unknown]
  - Psoriatic arthropathy [Not Recovered/Not Resolved]
  - Fall [Unknown]
